FAERS Safety Report 5089055-1 (Version None)
Quarter: 2006Q3

REPORT INFORMATION
  Report Type: 
  Country: None (occurrence: None)
  Receive Date: 20060822
  Receipt Date: 20060809
  Transmission Date: 20061208
  Serious: Yes (Hospitalization, Other)
  Sender: FDA-Public Use
  Company Number: 2006058516

PATIENT
  Age: 58 Year
  Sex: Female
  Weight: 90.7194 kg

DRUGS (1)
  1. CELEBREX [Suspect]
     Indication: ARTHRITIS
     Dosage: 300 MG (300 MG, 1 IN 1 D)

REACTIONS (26)
  - ABASIA [None]
  - ARTHRALGIA [None]
  - ASTHMA [None]
  - BALANCE DISORDER [None]
  - BRAIN STEM SYNDROME [None]
  - CARDIOVASCULAR DISORDER [None]
  - CEREBROVASCULAR ACCIDENT [None]
  - COLD SWEAT [None]
  - DEPRESSION [None]
  - DIABETES MELLITUS [None]
  - DIZZINESS [None]
  - DYSPNOEA [None]
  - FATIGUE [None]
  - FEELING HOT [None]
  - GASTRITIS [None]
  - GASTROOESOPHAGEAL REFLUX DISEASE [None]
  - HEMIPARESIS [None]
  - HIATUS HERNIA [None]
  - HYPERGLYCAEMIA [None]
  - MALAISE [None]
  - PARALYSIS [None]
  - RECTAL HAEMORRHAGE [None]
  - SCIATICA [None]
  - SYNCOPE [None]
  - VISION BLURRED [None]
  - VOMITING [None]
